FAERS Safety Report 24835699 (Version 2)
Quarter: 2025Q2

REPORT INFORMATION
  Report Type: Spontaneous
  Country: US (occurrence: US)
  Receive Date: 20250113
  Receipt Date: 20250401
  Transmission Date: 20250716
  Serious: Yes (Other)
  Sender: COOPERSURGICAL
  Company Number: US-COOPERSURGICAL, INC.-2025CPS000043

PATIENT
  Age: 35 Year
  Sex: Female
  Weight: 88.435 kg

DRUGS (2)
  1. PARAGARD T 380A [Suspect]
     Active Substance: COPPER
     Indication: Contraception
     Route: 015
     Dates: start: 20170120
  2. UNSPECIFIED INGREDIENT [Suspect]
     Active Substance: UNSPECIFIED INGREDIENT
     Indication: Nerve block
     Dates: start: 20200221, end: 20200221

REACTIONS (18)
  - Reproductive complication associated with device [Not Recovered/Not Resolved]
  - Ovarian cyst [Unknown]
  - Device breakage [Not Recovered/Not Resolved]
  - Foreign body in reproductive tract [Not Recovered/Not Resolved]
  - Complication of device removal [Not Recovered/Not Resolved]
  - Haematoma [Recovered/Resolved]
  - Emotional disorder [Unknown]
  - Emotional distress [Unknown]
  - Adnexa uteri pain [Unknown]
  - Device material issue [Unknown]
  - Pain [Not Recovered/Not Resolved]
  - Abnormal uterine bleeding [Not Recovered/Not Resolved]
  - Pelvic pain [Unknown]
  - Dysmenorrhoea [Unknown]
  - Device dislocation [Unknown]
  - Complication associated with device [Not Recovered/Not Resolved]
  - Procedural pain [Recovered/Resolved]
  - Drug intolerance [Unknown]

NARRATIVE: CASE EVENT DATE: 20170901
